FAERS Safety Report 20949992 (Version 1)
Quarter: 2022Q2

REPORT INFORMATION
  Report Type: Report from Study
  Country: US (occurrence: US)
  Receive Date: 20220613
  Receipt Date: 20220613
  Transmission Date: 20220721
  Serious: Yes (Other)
  Sender: FDA-Public Use
  Company Number: US-TAKEDA-2022TUS037323

PATIENT
  Sex: Female

DRUGS (1)
  1. HUMAN IMMUNOGLOBULIN G [Suspect]
     Active Substance: HUMAN IMMUNOGLOBULIN G
     Indication: Product used for unknown indication
     Dosage: 11 GRAM, 1/WEEK
     Route: 058

REACTIONS (4)
  - COVID-19 [Recovering/Resolving]
  - Localised infection [Recovering/Resolving]
  - Therapy interrupted [Recovering/Resolving]
  - Insurance issue [Recovering/Resolving]
